FAERS Safety Report 10221236 (Version 1)
Quarter: 2014Q2

REPORT INFORMATION
  Report Type: Spontaneous
  Country: US (occurrence: None)
  Receive Date: 20140605
  Receipt Date: 20140605
  Transmission Date: 20141212
  Serious: No
  Sender: FDA-Public Use
  Company Number: None

PATIENT
  Age: 67 Year
  Sex: Female

DRUGS (1)
  1. OMEPRAZOLE DELAYED-RELEASE CAPSULES 20MG MYLAN [Suspect]
     Route: 048
     Dates: start: 20140425, end: 20140528

REACTIONS (6)
  - Product quality issue [None]
  - Anxiety [None]
  - Palpitations [None]
  - Feeling abnormal [None]
  - Hypoaesthesia eye [None]
  - Product substitution issue [None]
